FAERS Safety Report 9717371 (Version 2)
Quarter: 2015Q3

REPORT INFORMATION
  Report Type: Spontaneous
  Country: US (occurrence: US)
  Receive Date: 20131127
  Receipt Date: 20150803
  Transmission Date: 20151125
  Serious: No
  Sender: FDA-Public Use
  Company Number: US-GILEAD-2008-0019539

PATIENT
  Age: 57 Year
  Sex: Female
  Weight: 58.97 kg

DRUGS (11)
  1. LETAIRIS [Suspect]
     Active Substance: AMBRISENTAN
     Indication: PULMONARY ARTERIAL HYPERTENSION
     Route: 048
     Dates: start: 20081124
  2. VENTAVIS [Concomitant]
     Active Substance: ILOPROST
  3. SPIRONOLACTONE. [Concomitant]
     Active Substance: SPIRONOLACTONE
  4. REVATIO [Concomitant]
     Active Substance: SILDENAFIL CITRATE
  5. LACTULOSE. [Concomitant]
     Active Substance: LACTULOSE
  6. K-DUR [Concomitant]
     Active Substance: POTASSIUM CHLORIDE
  7. OXYCONTIN [Concomitant]
     Active Substance: OXYCODONE HYDROCHLORIDE
  8. PERCODAN [Concomitant]
     Active Substance: ASPIRIN\OXYCODONE HYDROCHLORIDE
  9. NEXIUM [Concomitant]
     Active Substance: ESOMEPRAZOLE MAGNESIUM
  10. LASIX [Concomitant]
     Active Substance: FUROSEMIDE
  11. AMBIEN [Concomitant]
     Active Substance: ZOLPIDEM TARTRATE

REACTIONS (1)
  - Fatigue [None]
